FAERS Safety Report 5256600-2 (Version None)
Quarter: 2007Q1

REPORT INFORMATION
  Report Type: 
  Country: None (occurrence: None)
  Receive Date: 20061219
  Receipt Date: 20061113
  Transmission Date: 20070707
  Serious: No
  Sender: FDA-Public Use
  Company Number: 2006US002656

PATIENT
  Age: 58 Year
  Sex: Female

DRUGS (4)
  1. VESICARE [Suspect]
     Indication: HYPERTONIC BLADDER
     Dosage: 15 MG, UID/QD, ORAL
     Route: 048
     Dates: start: 20050101
  2. VESICARE [Suspect]
     Indication: HYPERTONIC BLADDER
     Dosage: 15 MG, UID/QD, ORAL
     Route: 048
     Dates: start: 20060401
  3. AVONEX [Concomitant]
  4. LEVOTHYROXINE SODIUM [Concomitant]

REACTIONS (4)
  - CONSTIPATION [None]
  - DRUG INEFFECTIVE [None]
  - DRY MOUTH [None]
  - INCORRECT DOSE ADMINISTERED [None]
